FAERS Safety Report 15838860 (Version 1)
Quarter: 2019Q1

REPORT INFORMATION
  Report Type: Spontaneous
  Country: US (occurrence: US)
  Receive Date: 20190117
  Receipt Date: 20190117
  Transmission Date: 20190417
  Serious: No
  Sender: FDA-Public Use
  Company Number: US-PFIZER INC-2018072378

PATIENT
  Age: 15 Year
  Sex: Male
  Weight: 31.5 kg

DRUGS (3)
  1. GENOTROPIN [Suspect]
     Active Substance: SOMATROPIN
     Indication: END STAGE RENAL DISEASE
     Dosage: 2.4 MG, DAILY
  2. GENOTROPIN [Suspect]
     Active Substance: SOMATROPIN
     Dosage: 3.2 MG, DAILY
     Dates: start: 20160303
  3. GENOTROPIN [Suspect]
     Active Substance: SOMATROPIN
     Dosage: 3.2 MG, DAILY
     Dates: start: 20180303

REACTIONS (11)
  - Mean cell haemoglobin increased [Unknown]
  - Product use in unapproved indication [Unknown]
  - Iron deficiency [Unknown]
  - Eosinophil count increased [Unknown]
  - Anion gap increased [Unknown]
  - Mean cell haemoglobin concentration decreased [Unknown]
  - Mean cell volume increased [Unknown]
  - Blood growth hormone decreased [Unknown]
  - Blood phosphorus increased [Unknown]
  - Haematocrit increased [Unknown]
  - Haemoglobin increased [Unknown]
